FAERS Safety Report 7471783-1 (Version None)
Quarter: 2011Q2

REPORT INFORMATION
  Report Type: 
  Country: None (occurrence: None)
  Receive Date: 20110511
  Receipt Date: 20100422
  Transmission Date: 20111010
  Serious: No
  Sender: FDA-Public Use
  Company Number: A0856954A

PATIENT
  Sex: Female

DRUGS (2)
  1. XELODA [Suspect]
     Indication: BREAST CANCER
  2. TYKERB [Suspect]
     Indication: BREAST CANCER
     Dosage: 250MG FIVE TIMES PER DAY
     Route: 048
     Dates: start: 20100403

REACTIONS (17)
  - PARAESTHESIA [None]
  - DECREASED APPETITE [None]
  - RHINORRHOEA [None]
  - ILL-DEFINED DISORDER [None]
  - HYPOAESTHESIA [None]
  - OROPHARYNGEAL BLISTERING [None]
  - MALAISE [None]
  - FATIGUE [None]
  - ERYTHEMA [None]
  - PAIN IN EXTREMITY [None]
  - DIARRHOEA [None]
  - DYSPEPSIA [None]
  - OEDEMA PERIPHERAL [None]
  - DRY SKIN [None]
  - WEIGHT DECREASED [None]
  - STOMATITIS [None]
  - DRY MOUTH [None]
